FAERS Safety Report 9397189 (Version 23)
Quarter: 2016Q4

REPORT INFORMATION
  Report Type: Report from Study
  Country: CA (occurrence: CA)
  Receive Date: 20140205
  Receipt Date: 20161209
  Transmission Date: 20170207
  Serious: Yes (Hospitalization, Other)
  Sender: FDA-Public Use
  Company Number: PHHY2013CA058525

PATIENT
  Age: 75 Year
  Sex: Male

DRUGS (13)
  1. SANDOSTATIN LAR DEPOT [Suspect]
     Active Substance: OCTREOTIDE ACETATE
     Dosage: 40 MG, QMO (EVERY 4 WEEKS)
     Route: 030
     Dates: start: 20140303
  2. CALCIUM [Concomitant]
     Active Substance: CALCIUM
     Indication: PRODUCT USED FOR UNKNOWN INDICATION
     Route: 065
  3. LUTETIUM (LU 177) [Concomitant]
     Active Substance: LUTETIUM LU-177
     Indication: PRODUCT USED FOR UNKNOWN INDICATION
     Route: 065
  4. SALMON OIL [Concomitant]
     Active Substance: FISH OIL
     Indication: PRODUCT USED FOR UNKNOWN INDICATION
     Route: 065
  5. VITAMINS NOS [Concomitant]
     Active Substance: VITAMINS
     Indication: PRODUCT USED FOR UNKNOWN INDICATION
     Route: 065
  6. MAGNESIUM [Concomitant]
     Active Substance: MAGNESIUM
     Indication: PRODUCT USED FOR UNKNOWN INDICATION
     Route: 065
  7. MINERAL [Concomitant]
     Indication: PRODUCT USED FOR UNKNOWN INDICATION
     Route: 065
  8. ALPRENOLOL [Concomitant]
     Indication: PRODUCT USED FOR UNKNOWN INDICATION
     Route: 065
  9. SANDOSTATIN [Suspect]
     Active Substance: OCTREOTIDE ACETATE
     Indication: METASTATIC CARCINOID TUMOUR
     Dosage: UNKNOWN DOSE, TID (FOR 2 WEEKS)
     Route: 058
     Dates: start: 20120214, end: 20120228
  10. SANDOSTATIN LAR DEPOT [Suspect]
     Active Substance: OCTREOTIDE ACETATE
     Indication: METASTATIC CARCINOID TUMOUR
     Dosage: 20 MG, QMO (EVERY FOUR WEEKS)
     Route: 030
     Dates: start: 20120228, end: 20120228
  11. SANDOSTATIN LAR DEPOT [Suspect]
     Active Substance: OCTREOTIDE ACETATE
     Dosage: 30 MG, QMO (EVERY 4 WEEKS)
     Route: 030
     Dates: start: 20120425, end: 20140131
  12. COZAAR [Concomitant]
     Active Substance: LOSARTAN POTASSIUM
     Indication: PRODUCT USED FOR UNKNOWN INDICATION
     Route: 065
  13. SANDOSTATIN LAR DEPOT [Suspect]
     Active Substance: OCTREOTIDE ACETATE
     Dosage: 30 MG, QMO (EVERY 4 WEEKS)
     Route: 030
     Dates: start: 201203

REACTIONS (24)
  - Influenza like illness [Unknown]
  - Malabsorption [Unknown]
  - Weight decreased [Unknown]
  - Renal impairment [Unknown]
  - Breast mass [Unknown]
  - Malignant neoplasm progression [Unknown]
  - Abnormal faeces [Unknown]
  - Onychoclasis [Unknown]
  - Blood pressure systolic increased [Unknown]
  - Throat tightness [Unknown]
  - Pruritus [Unknown]
  - Hypertension [Unknown]
  - Metastases to liver [Unknown]
  - Steatorrhoea [Unknown]
  - Dehydration [Unknown]
  - Flatulence [Unknown]
  - Asthenia [Unknown]
  - Neoplasm [Unknown]
  - Frequent bowel movements [Unknown]
  - Diarrhoea [Unknown]
  - Constipation [Unknown]
  - Musculoskeletal pain [Unknown]
  - Body temperature decreased [Unknown]
  - Fall [Unknown]

NARRATIVE: CASE EVENT DATE: 20150823
